FAERS Safety Report 8865325 (Version 1)
Quarter: 2012Q4

REPORT INFORMATION
  Report Type: 
  Country: US (occurrence: US)
  Receive Date: 20121024
  Receipt Date: 20121024
  Transmission Date: 20130627
  Serious: No
  Sender: FDA-Public Use
  Company Number: US-AMGEN-USASP2012002310

PATIENT
  Sex: Male
  Weight: 120.18 kg

DRUGS (5)
  1. ENBREL [Suspect]
     Indication: PRODUCT USED FOR UNKNOWN INDICATION
     Dosage: 50 mg, 2 times/wk
     Route: 058
  2. LISINOPRIL [Concomitant]
     Dosage: 2.5 mg, UNK
     Route: 048
  3. CARVEDILOL [Concomitant]
     Dosage: 25 mg, UNK
     Route: 048
  4. FLOMAX                             /00889901/ [Concomitant]
     Dosage: 0.4 mg, UNK
     Route: 048
  5. PRADAXA [Concomitant]
     Dosage: 150 mg, UNK
     Route: 048

REACTIONS (1)
  - Injection site pruritus [Unknown]
